FAERS Safety Report 5291471-X (Version None)
Quarter: 2007Q2

REPORT INFORMATION
  Report Type: 
  Country: None (occurrence: None)
  Receive Date: 20070403
  Receipt Date: 20070327
  Transmission Date: 20071010
  Serious: Yes (Other)
  Sender: FDA-Public Use
  Company Number: 154508USA

PATIENT
  Age: 77 Year
  Sex: Male

DRUGS (3)
  1. PIMOZIDE TABLETS (PIMOZIDE) [Suspect]
     Indication: PRURITUS
     Dosage: ORAL
     Route: 048
     Dates: start: 20050201, end: 20050401
  2. EZETIMIBE [Concomitant]
  3. ATORVASTATIN CALCIUM [Concomitant]

REACTIONS (5)
  - HEMIPLEGIA [None]
  - ILL-DEFINED DISORDER [None]
  - PARKINSON'S DISEASE [None]
  - TONGUE DISORDER [None]
  - TREMOR [None]
